FAERS Safety Report 7042955-5 (Version None)
Quarter: 2010Q4

REPORT INFORMATION
  Report Type: 
  Country: None (occurrence: None)
  Receive Date: 20101013
  Receipt Date: 20101011
  Transmission Date: 20110411
  Serious: Yes (Hospitalization)
  Sender: FDA-Public Use
  Company Number: US-BRISTOL-MYERS SQUIBB COMPANY-15327968

PATIENT
  Age: 81 Year
  Sex: Female

DRUGS (3)
  1. WARFARIN SODIUM [Suspect]
  2. DIGOXIN [Concomitant]
  3. POTASSIUM [Concomitant]

REACTIONS (2)
  - PERICARDIAL EFFUSION [None]
  - VISION BLURRED [None]
